FAERS Safety Report 7893903-7 (Version None)
Quarter: 2011Q4

REPORT INFORMATION
  Report Type: 
  Country: None (occurrence: None)
  Receive Date: 20111104
  Receipt Date: 20111025
  Transmission Date: 20120403
  Serious: Yes (Death)
  Sender: FDA-Public Use
  Company Number: DE-BAXTER-2011BH034596

PATIENT
  Sex: Female

DRUGS (7)
  1. CYCLOPHOSPHAMIDE [Suspect]
     Indication: BREAST CANCER
     Route: 042
  2. NEUPOGEN [Concomitant]
     Indication: PROPHYLAXIS
     Route: 065
  3. DOXORUBICIN HCL [Suspect]
     Indication: BREAST CANCER
     Route: 042
  4. ANTIEMETIC [Concomitant]
     Indication: PROPHYLAXIS
     Route: 065
  5. CORTICOSTEROID [Concomitant]
     Indication: PREMEDICATION
     Route: 065
  6. DOCETAXEL [Suspect]
     Indication: BREAST CANCER
     Route: 042
  7. CIPRO [Concomitant]
     Indication: PRODUCT USED FOR UNKNOWN INDICATION
     Route: 048

REACTIONS (1)
  - SEPSIS [None]
